FAERS Safety Report 13477585 (Version 1)
Quarter: 2017Q2

REPORT INFORMATION
  Report Type: Spontaneous
  Country: UG (occurrence: UG)
  Receive Date: 20170425
  Receipt Date: 20170425
  Transmission Date: 20170830
  Serious: Yes (Other)
  Sender: FDA-Public Use
  Company Number: UG-PFIZER INC-2017176116

PATIENT

DRUGS (2)
  1. VIAGRA [Suspect]
     Active Substance: SILDENAFIL CITRATE
     Dosage: 500 MG (50 MG X 10 PILLS)
  2. MEXICAN BLACK TAR HEROIN [Concomitant]
     Dosage: UNK

REACTIONS (2)
  - Overdose [Unknown]
  - Penis disorder [Unknown]
